FAERS Safety Report 9457190 (Version 2)
Quarter: 2013Q3

REPORT INFORMATION
  Report Type: Spontaneous
  Country: US (occurrence: US)
  Receive Date: 20130814
  Receipt Date: 20130919
  Transmission Date: 20140515
  Serious: No
  Sender: FDA-Public Use
  Company Number: US-B.I. PHARMACEUTICALS,INC./RIDGEFIELD-2013-BI-23947BP

PATIENT
  Age: 69 Year
  Sex: Female
  Weight: 67.13 kg

DRUGS (3)
  1. COMBIVENT [Suspect]
     Indication: CHRONIC OBSTRUCTIVE PULMONARY DISEASE
     Dosage: STRENGTH: 18 MCG / 103 MCG
     Route: 055
     Dates: start: 2005, end: 201307
  2. COMBIVENT [Suspect]
     Indication: CHRONIC OBSTRUCTIVE PULMONARY DISEASE
     Dosage: STRENGTH: 20 MCG / 100 MCG;
     Route: 055
     Dates: start: 201307
  3. COMBIVENT [Suspect]
     Indication: EMPHYSEMA

REACTIONS (6)
  - Cough [Not Recovered/Not Resolved]
  - Hiatus hernia [Not Recovered/Not Resolved]
  - Osteoporosis [Not Recovered/Not Resolved]
  - Spinal fracture [Recovered/Resolved]
  - Productive cough [Not Recovered/Not Resolved]
  - Body height decreased [Not Recovered/Not Resolved]
